FAERS Safety Report 14366993 (Version 1)
Quarter: 2018Q1

REPORT INFORMATION
  Report Type: Spontaneous
  Country: US (occurrence: US)
  Receive Date: 20180109
  Receipt Date: 20180109
  Transmission Date: 20180509
  Serious: Yes (Hospitalization, Other)
  Sender: FDA-Public Use
  Company Number: US-GLAXOSMITHKLINE-US2018001474

PATIENT
  Age: 71 Year
  Sex: Female

DRUGS (1)
  1. VENTOLIN [Suspect]
     Active Substance: ALBUTEROL SULFATE
     Indication: ASTHMA
     Dosage: 2 PUFF(S), QID

REACTIONS (5)
  - Hospitalisation [Recovered/Resolved with Sequelae]
  - Cardiac operation [Recovering/Resolving]
  - Atrial fibrillation [Recovering/Resolving]
  - Colostomy [Recovering/Resolving]
  - Tracheostomy [Recovering/Resolving]

NARRATIVE: CASE EVENT DATE: 20171001
